FAERS Safety Report 20618725 (Version 2)
Quarter: 2022Q1

REPORT INFORMATION
  Report Type: Spontaneous
  Country: BR (occurrence: BR)
  Receive Date: 20220322
  Receipt Date: 20220329
  Transmission Date: 20220423
  Serious: Yes (Hospitalization, Other)
  Sender: FDA-Public Use
  Company Number: BR-ALKEM LABORATORIES LIMITED-BR-ALKEM-2022-02234

PATIENT
  Age: 51 Year
  Sex: Male

DRUGS (1)
  1. MORPHINE SULFATE [Suspect]
     Active Substance: MORPHINE SULFATE
     Indication: Product used for unknown indication
     Dosage: 10 MILLIGRAM TABLET
     Route: 065

REACTIONS (5)
  - Rhabdomyolysis [Unknown]
  - Compartment syndrome [Unknown]
  - Intentional product misuse [Unknown]
  - Peripheral ischaemia [Unknown]
  - Renal failure [Recovered/Resolved]
